FAERS Safety Report 5221117-8 (Version None)
Quarter: 2007Q1

REPORT INFORMATION
  Report Type: 
  Country: None (occurrence: None)
  Receive Date: 20070126
  Receipt Date: 20061020
  Transmission Date: 20070707
  Serious: No
  Sender: FDA-Public Use
  Company Number: US-BRISTOL-MYERS SQUIBB COMPANY-13548664

PATIENT
  Age: 23 Month
  Sex: Female
  Weight: 11 kg

DRUGS (1)
  1. CEFZIL [Suspect]
     Indication: UPPER RESPIRATORY TRACT INFECTION

REACTIONS (1)
  - PSYCHOMOTOR HYPERACTIVITY [None]
